FAERS Safety Report 6972522-0 (Version None)
Quarter: 2010Q3

REPORT INFORMATION
  Report Type: 
  Country: None (occurrence: None)
  Receive Date: 20100909
  Receipt Date: 20100903
  Transmission Date: 20110219
  Serious: Yes (Other)
  Sender: FDA-Public Use
  Company Number: JP-BAYER-200812384BYL

PATIENT
  Age: 52 Year
  Sex: Male
  Weight: 59 kg

DRUGS (5)
  1. NEXAVAR [Suspect]
     Indication: RENAL CELL CARCINOMA
     Dosage: TOTAL DAILY DOSE: 400 MG  UNIT DOSE: 200 MG
     Route: 048
     Dates: start: 20080908, end: 20090623
  2. NEXAVAR [Suspect]
     Route: 048
     Dates: start: 20090624
  3. FLUVASTATIN [Concomitant]
     Dosage: 20-30MG/DAY
     Route: 048
     Dates: start: 20081211, end: 20090915
  4. JUVELA N [Concomitant]
     Route: 048
     Dates: start: 20090108, end: 20090915
  5. ZOMETA [Concomitant]
     Route: 042
     Dates: start: 20090402, end: 20090915

REACTIONS (6)
  - ALOPECIA [None]
  - BLOOD THYROID STIMULATING HORMONE INCREASED [None]
  - HYPERLIPIDAEMIA [None]
  - HYPERTENSION [None]
  - PALMAR-PLANTAR ERYTHRODYSAESTHESIA SYNDROME [None]
  - PROTEINURIA [None]
